FAERS Safety Report 6681995-2 (Version None)
Quarter: 2010Q2

REPORT INFORMATION
  Report Type: 
  Country: None (occurrence: None)
  Receive Date: 20100414
  Receipt Date: 20100414
  Transmission Date: 20101027
  Serious: No
  Sender: FDA-Public Use
  Company Number: None

PATIENT
  Sex: Female
  Weight: 83.9154 kg

DRUGS (1)
  1. AMLODIPINE [Suspect]
     Dosage: ONE DAYLY
     Dates: start: 20100226, end: 20100329

REACTIONS (5)
  - ASTHENIA [None]
  - DRUG TOXICITY [None]
  - FLATULENCE [None]
  - NAUSEA [None]
  - PRODUCT ODOUR ABNORMAL [None]
